FAERS Safety Report 7500962-X (Version None)
Quarter: 2011Q2

REPORT INFORMATION
  Report Type: 
  Country: None (occurrence: None)
  Receive Date: 20110524
  Receipt Date: 20110519
  Transmission Date: 20111010
  Serious: Yes (Life-Threatening, Other)
  Sender: FDA-Public Use
  Company Number: FR-PFIZER INC-2011107512

PATIENT
  Age: 7 Month
  Sex: Female
  Weight: 8 kg

DRUGS (2)
  1. FOSPHENYTOIN SODIUM [Suspect]
     Indication: CONVULSION
     Dosage: 100 MG/KG, UNK
     Route: 042
     Dates: start: 20100506, end: 20100506
  2. CLONAZEPAM [Concomitant]
     Dosage: 0.07 MG/KG, 1X/DAY
     Route: 042

REACTIONS (5)
  - STATUS EPILEPTICUS [None]
  - RESPIRATORY DISTRESS [None]
  - PNEUMONIA ASPIRATION [None]
  - ACCIDENTAL OVERDOSE [None]
  - HYPOTENSION [None]
